FAERS Safety Report 22638330 (Version 2)
Quarter: 2023Q2

REPORT INFORMATION
  Report Type: Spontaneous
  Country: PE (occurrence: PE)
  Receive Date: 20230626
  Receipt Date: 20230628
  Transmission Date: 20230721
  Serious: Yes (Life-Threatening, Hospitalization, Other)
  Sender: FDA-Public Use
  Company Number: None

PATIENT
  Age: 62 Year
  Sex: Male

DRUGS (7)
  1. PREDNISOLONE [Suspect]
     Active Substance: PREDNISOLONE
     Indication: Colitis ulcerative
     Dosage: 50 MILLIGRAM, HIGH-DOSE (PER DAY)
     Route: 065
  2. PREDNISOLONE [Suspect]
     Active Substance: PREDNISOLONE
     Dosage: UNK (TAPERING DOSE)
     Route: 065
  3. PREDNISOLONE [Suspect]
     Active Substance: PREDNISOLONE
     Dosage: 20 MILLIGRAM (PER DAY)
     Route: 065
  4. AZATHIOPRINE [Suspect]
     Active Substance: AZATHIOPRINE
     Indication: Colitis ulcerative
     Dosage: 150 MILLIGRAM, QD
     Route: 065
  5. CEFTRIAXONE [Suspect]
     Active Substance: CEFTRIAXONE
     Indication: Intervertebral discitis
     Dosage: 2 GRAM (PER DAY)
     Route: 065
  6. ERTAPENEM [Suspect]
     Active Substance: ERTAPENEM
     Indication: Escherichia infection
     Dosage: 1 GRAM (PER DAY)
     Route: 065
  7. MESALAMINE [Suspect]
     Active Substance: MESALAMINE
     Indication: Colitis ulcerative
     Dosage: UNK
     Route: 065

REACTIONS (13)
  - Aneurysm ruptured [Recovered/Resolved]
  - Peripheral artery aneurysm [Recovered/Resolved]
  - Pleural effusion [Recovered/Resolved]
  - Aortic aneurysm [Recovered/Resolved]
  - Hypotension [Recovered/Resolved]
  - Disseminated trichosporonosis [Recovered/Resolved]
  - Infective aneurysm [Recovered/Resolved]
  - Trichosporon infection [Recovered/Resolved]
  - Pulmonary trichosporonosis [Recovered/Resolved]
  - Escherichia infection [Recovered/Resolved]
  - Bone abscess [Recovered/Resolved]
  - Intervertebral discitis [Recovered/Resolved]
  - Salmonellosis [Recovered/Resolved]
